FAERS Safety Report 13801158 (Version 1)
Quarter: 2017Q3

REPORT INFORMATION
  Report Type: Spontaneous
  Country: JP (occurrence: JP)
  Receive Date: 20170727
  Receipt Date: 20170727
  Transmission Date: 20171127
  Serious: Yes (Life-Threatening, Hospitalization, Other)
  Sender: FDA-Public Use
  Company Number: JP-GE HEALTHCARE LIFE SCIENCES-OMPQ-NO-0806S-0391

PATIENT

DRUGS (9)
  1. CARBOCISTEINE (MUCODYNE) [Concomitant]
     Dosage: 250 MG, TID
     Route: 048
  2. WARFARIN [Concomitant]
     Active Substance: WARFARIN
     Indication: ANGINA PECTORIS
     Dosage: UNK
     Route: 048
  3. OMNIPAQUE [Suspect]
     Active Substance: IOHEXOL
     Indication: ANGINA PECTORIS
     Dosage: UNK
     Route: 022
     Dates: start: 20080502, end: 20080502
  4. PIPERACILLIN SODIUM (PENTCILLIN) [Suspect]
     Active Substance: PIPERACILLIN SODIUM
     Indication: PNEUMONIA
     Dosage: 1 G, QD
     Route: 041
     Dates: start: 20080508, end: 20080518
  5. CARVEDILOL (ARTIST) [Concomitant]
     Active Substance: CARVEDILOL
     Indication: HYPERTENSION
     Dosage: ONCE AT NO DIALYSIS DAY
     Route: 048
  6. RABEPRAZOLE SODIUM (PARIET) [Concomitant]
     Indication: GASTRIC ULCER
     Dosage: 10 UNK, QD
     Route: 048
  7. RENAGEL [Concomitant]
     Active Substance: SEVELAMER HYDROCHLORIDE
     Indication: CHRONIC KIDNEY DISEASE
     Dosage: 500 UNK, UNK
     Route: 048
  8. ACETYLSALICYLIC ACID (BAYASPIRIN) [Concomitant]
     Indication: ANGINA PECTORIS
     Dosage: 100 UNK, UNK
     Route: 048
  9. ZOLPIDEM [Concomitant]
     Active Substance: ZOLPIDEM\ZOLPIDEM TARTRATE
     Indication: INSOMNIA
     Dosage: 5 MG, QD
     Route: 048

REACTIONS (11)
  - Generalised erythema [Unknown]
  - Viral infection [Unknown]
  - Necrosis [Unknown]
  - Lip erosion [Unknown]
  - Blister [Unknown]
  - Stevens-Johnson syndrome [Recovered/Resolved]
  - Thirst [Unknown]
  - Lip swelling [Unknown]
  - Conjunctival hyperaemia [Unknown]
  - Pyrexia [Unknown]
  - Skin necrosis [Unknown]

NARRATIVE: CASE EVENT DATE: 20080507
